FAERS Safety Report 13508475 (Version 2)
Quarter: 2017Q2

REPORT INFORMATION
  Report Type: Spontaneous
  Country: CA (occurrence: CA)
  Receive Date: 20170503
  Receipt Date: 20170511
  Transmission Date: 20170830
  Serious: Yes (Life-Threatening, Other)
  Sender: FDA-Public Use
  Company Number: CA-AUROBINDO-AUR-APL-2017-33374

PATIENT
  Age: 59 Year
  Sex: Female

DRUGS (7)
  1. AMPICILLIN [Suspect]
     Active Substance: AMPICILLIN
     Indication: LISTERIOSIS
     Dosage: UNK
     Route: 042
  2. VANCOMYCIN [Suspect]
     Active Substance: VANCOMYCIN
     Indication: LISTERIOSIS
     Dosage: UNK
     Route: 033
  3. CEFTAZIDIME. [Suspect]
     Active Substance: CEFTAZIDIME
     Indication: PERITONEAL CLOUDY EFFLUENT
  4. VANCOMYCIN [Suspect]
     Active Substance: VANCOMYCIN
     Indication: PERITONEAL CLOUDY EFFLUENT
  5. GENTAMICIN. [Suspect]
     Active Substance: GENTAMICIN
     Indication: LISTERIOSIS
     Dosage: UNK
     Route: 065
  6. ABACIN [Suspect]
     Active Substance: SULFAMETHOXAZOLE\TRIMETHOPRIM
     Indication: LISTERIOSIS
     Route: 042
  7. CEFTAZIDIME. [Suspect]
     Active Substance: CEFTAZIDIME
     Indication: LISTERIOSIS
     Dosage: UNK
     Route: 033

REACTIONS (1)
  - Drug ineffective [Not Recovered/Not Resolved]
